FAERS Safety Report 24141420 (Version 1)
Quarter: 2024Q3

REPORT INFORMATION
  Report Type: Spontaneous
  Country: US (occurrence: US)
  Receive Date: 20240726
  Receipt Date: 20240726
  Transmission Date: 20241016
  Serious: Yes (Other)
  Sender: NOVARTIS
  Company Number: US-002147023-NVSC2024US150623

PATIENT

DRUGS (1)
  1. COSENTYX [Suspect]
     Active Substance: SECUKINUMAB
     Indication: Product used for unknown indication
     Dosage: UNK
     Route: 065

REACTIONS (7)
  - Erythema multiforme [Recovered/Resolved]
  - Arthritis [Recovered/Resolved]
  - Trismus [Recovered/Resolved]
  - Eating disorder [Recovered/Resolved]
  - Gait disturbance [Recovered/Resolved]
  - Pustule [Recovered/Resolved]
  - Pain [Recovered/Resolved]
